FAERS Safety Report 4839880-4 (Version None)
Quarter: 2005Q4

REPORT INFORMATION
  Report Type: 
  Country: None (occurrence: None)
  Receive Date: 20051129
  Receipt Date: 20051117
  Transmission Date: 20060501
  Serious: Yes (Other)
  Sender: FDA-Public Use
  Company Number: CA-ROCHE-425444

PATIENT
  Age: 59 Year
  Sex: Female
  Weight: 68 kg

DRUGS (6)
  1. CLONAZEPAM [Suspect]
     Indication: DRUG USE FOR UNKNOWN INDICATION
     Dosage: DOSE DURATION REPORTED AS 4 YEARS (UNCLEAR IF DRUG WAS STOPPED).
     Route: 048
  2. LORAZEPAM [Suspect]
     Indication: DRUG USE FOR UNKNOWN INDICATION
     Dosage: DOSE DURATION REPORTED AS 16 YEARS, UNCLEAR IF DRUG WAS STOPPED).
     Route: 065
  3. CIMETIDINE [Concomitant]
  4. BUSPIRONE [Concomitant]
  5. EVISTA [Concomitant]
  6. WELLBUTRIN [Concomitant]

REACTIONS (3)
  - COGNITIVE DISORDER [None]
  - DRUG WITHDRAWAL SYNDROME [None]
  - PAIN [None]
